FAERS Safety Report 9450892 (Version 1)
Quarter: 2013Q3

REPORT INFORMATION
  Report Type: Spontaneous
  Country: GB (occurrence: GB)
  Receive Date: 20130809
  Receipt Date: 20130809
  Transmission Date: 20140515
  Serious: Yes (Congenital Anomaly, Other)
  Sender: FDA-Public Use
  Company Number: GB-BRISTOL-MYERS SQUIBB COMPANY-19181551

PATIENT
  Sex: 0

DRUGS (1)
  1. ABILIFY [Suspect]
     Route: 064

REACTIONS (1)
  - Anotia [Unknown]
